FAERS Safety Report 8440128-2 (Version None)
Quarter: 2012Q2

REPORT INFORMATION
  Report Type: 
  Country: None (occurrence: None)
  Receive Date: 20120615
  Receipt Date: 20120606
  Transmission Date: 20120825
  Serious: Yes (Hospitalization)
  Sender: FDA-Public Use
  Company Number: US-ACTELION-A-NJ2011-47681

PATIENT

DRUGS (6)
  1. ADCIRCA [Concomitant]
  2. REVATIO [Concomitant]
  3. REMODULIN [Concomitant]
  4. COUMADIN [Concomitant]
  5. TRACLEER [Suspect]
     Indication: PULMONARY ARTERIAL HYPERTENSION
     Dosage: UNK
     Route: 048
     Dates: start: 20110324
  6. OXYGEN [Concomitant]

REACTIONS (12)
  - OEDEMA [None]
  - DIZZINESS [None]
  - CONDITION AGGRAVATED [None]
  - POLLAKIURIA [None]
  - FATIGUE [None]
  - SOMNOLENCE [None]
  - OEDEMA PERIPHERAL [None]
  - FLUID RETENTION [None]
  - DYSPNOEA [None]
  - CYANOSIS [None]
  - BRONCHITIS [None]
  - COUGH [None]
